FAERS Safety Report 8930725 (Version 8)
Quarter: 2015Q1

REPORT INFORMATION
  Report Type: Spontaneous
  Country: US (occurrence: US)
  Receive Date: 20121128
  Receipt Date: 20150224
  Transmission Date: 20150721
  Serious: Yes (Hospitalization, Disabling, Other)
  Sender: FDA-Public Use
  Company Number: US-009507513-1211USA008146

PATIENT
  Sex: Female
  Weight: 72.56 kg

DRUGS (2)
  1. FOSAMAX PLUS D [Suspect]
     Active Substance: ALENDRONATE SODIUM\CHOLECALCIFEROL
     Indication: OSTEOPOROSIS
     Dosage: 70MG / 2800IU
     Route: 048
     Dates: start: 20070131, end: 20090131
  2. FOSAMAX [Suspect]
     Active Substance: ALENDRONATE SODIUM
     Indication: OSTEOPOROSIS
     Dosage: 70 MG, UNK
     Route: 048
     Dates: start: 20010613, end: 20061023

REACTIONS (24)
  - Femur fracture [Recovered/Resolved]
  - Low turnover osteopathy [Not Recovered/Not Resolved]
  - Chronic obstructive pulmonary disease [Not Recovered/Not Resolved]
  - Anaemia [Unknown]
  - Anxiety [Not Recovered/Not Resolved]
  - Thyroid nodule removal [Unknown]
  - Osteoporosis [Not Recovered/Not Resolved]
  - Osteoarthritis [Unknown]
  - Balance disorder [Unknown]
  - Hysterectomy [Unknown]
  - Benign neoplasm of thyroid gland [Unknown]
  - Constipation [Unknown]
  - Intramedullary rod insertion [Recovered/Resolved]
  - Femur fracture [Not Recovered/Not Resolved]
  - Deep vein thrombosis [Unknown]
  - Pelvic fracture [Recovered/Resolved]
  - Impaired healing [Recovered/Resolved]
  - Depression [Not Recovered/Not Resolved]
  - Bone fragmentation [Recovered/Resolved]
  - Pain [Not Recovered/Not Resolved]
  - Device breakage [Unknown]
  - Multiple fractures [Not Recovered/Not Resolved]
  - Hip arthroplasty [Unknown]
  - Complication of device removal [Unknown]

NARRATIVE: CASE EVENT DATE: 20070322
